FAERS Safety Report 10663236 (Version 1)
Quarter: 2014Q4

REPORT INFORMATION
  Report Type: Spontaneous
  Country: US (occurrence: US)
  Receive Date: 20141218
  Receipt Date: 20141218
  Transmission Date: 20150529
  Serious: No
  Sender: FDA-Public Use
  Company Number: US-GLAXOSMITHKLINE-A1089586A

PATIENT

DRUGS (7)
  1. MEKINIST [Suspect]
     Active Substance: TRAMETINIB DIMETHYL SULFOXIDE
     Indication: MALIGNANT MELANOMA
     Dosage: 2MG TABLET
     Route: 048
     Dates: start: 20140417
  2. SPIRONOLACTONE. [Concomitant]
     Active Substance: SPIRONOLACTONE
  3. VEMURAFENIB [Concomitant]
     Active Substance: VEMURAFENIB
  4. TAFINLAR [Suspect]
     Active Substance: DABRAFENIB MESYLATE
     Indication: MALIGNANT MELANOMA
     Dosage: 75 MG CAPSULE, TWO CAPSULES (150 MG) TWICE DAILY
     Route: 048
     Dates: start: 20140417
  5. ECOTRIN [Concomitant]
     Active Substance: ASPIRIN
  6. FUROSEMIDE. [Concomitant]
     Active Substance: FUROSEMIDE
  7. BISOPROLOL + HCTZ [Concomitant]

REACTIONS (1)
  - Treatment noncompliance [Unknown]
